FAERS Safety Report 5060990-3 (Version None)
Quarter: 2006Q3

REPORT INFORMATION
  Report Type: 
  Country: None (occurrence: None)
  Receive Date: 20060720
  Receipt Date: 20060710
  Transmission Date: 20061208
  Serious: Yes (Other)
  Sender: FDA-Public Use
  Company Number: 2006-DE-03521GD

PATIENT
  Age: 33 Year
  Sex: Female

DRUGS (2)
  1. ALBUTEROL SULFATE (SALBUTAMOL) [Suspect]
     Indication: ASTHMA
     Dosage: (180 MCG, 6 TIMES), IH
     Route: 055
  2. FLUTICASONE PROPIONATE [Suspect]
     Indication: ASTHMA
     Dosage: 110 MCG, IN THE MORNING), IH
     Route: 055

REACTIONS (7)
  - ASTHMA [None]
  - CONDITION AGGRAVATED [None]
  - DRUG EFFECT DECREASED [None]
  - DYSPHONIA [None]
  - HEART RATE INCREASED [None]
  - RESPIRATORY RATE INCREASED [None]
  - UPPER RESPIRATORY TRACT INFECTION [None]
